FAERS Safety Report 16299424 (Version 1)
Quarter: 2019Q2

REPORT INFORMATION
  Report Type: Spontaneous
  Country: US (occurrence: US)
  Receive Date: 20190510
  Receipt Date: 20190510
  Transmission Date: 20190711
  Serious: Yes (Hospitalization, Other)
  Sender: FDA-Public Use
  Company Number: US-GILEAD-2019-0406413

PATIENT
  Age: 56 Year
  Sex: Male

DRUGS (9)
  1. CYTOXAN [Suspect]
     Active Substance: CYCLOPHOSPHAMIDE
     Indication: BONE MARROW CONDITIONING REGIMEN
     Dosage: UNK
     Route: 065
     Dates: start: 20190227, end: 20190301
  2. OMEPRAZOLE. [Concomitant]
     Active Substance: OMEPRAZOLE
  3. PROCHLORPERAZINE MALEATE. [Concomitant]
     Active Substance: PROCHLORPERAZINE MALEATE
  4. ONDANSETRON [Concomitant]
     Active Substance: ONDANSETRON
  5. TRAMADOL. [Concomitant]
     Active Substance: TRAMADOL
  6. ACYCLOVIR [ACICLOVIR] [Concomitant]
     Active Substance: ACYCLOVIR
  7. PRAVASTATIN. [Concomitant]
     Active Substance: PRAVASTATIN
  8. FLUDARABINE [Suspect]
     Active Substance: FLUDARABINE PHOSPHATE
     Indication: BONE MARROW CONDITIONING REGIMEN
     Dosage: UNK
     Route: 065
     Dates: start: 20190227, end: 20190301
  9. YESCARTA [Suspect]
     Active Substance: AXICABTAGENE CILOLEUCEL
     Indication: DIFFUSE LARGE B-CELL LYMPHOMA
     Dosage: UNK UNK, ONCE
     Route: 042
     Dates: start: 20190304, end: 20190304

REACTIONS (3)
  - Cytokine release syndrome [Recovered/Resolved]
  - Pancytopenia [Recovering/Resolving]
  - Encephalopathy [Recovered/Resolved]

NARRATIVE: CASE EVENT DATE: 20190307
